FAERS Safety Report 7603428-1 (Version None)
Quarter: 2011Q3

REPORT INFORMATION
  Report Type: 
  Country: None (occurrence: None)
  Receive Date: 20110712
  Receipt Date: 20110625
  Transmission Date: 20111222
  Serious: No
  Sender: FDA-Public Use
  Company Number: US-B.I. PHARMACEUTICALS,INC./RIDGEFIELD-2011-BP-09546BP

PATIENT
  Sex: Male

DRUGS (8)
  1. ADVAIR DISKUS 100/50 [Concomitant]
     Indication: CHRONIC OBSTRUCTIVE PULMONARY DISEASE
     Route: 055
  2. ZOCOR [Concomitant]
     Indication: BLOOD CHOLESTEROL INCREASED
     Dosage: 10 MG
     Route: 048
  3. AMIODARONE HCL [Concomitant]
     Indication: ATRIAL FIBRILLATION
     Dosage: 100 MG
     Route: 048
  4. TOPROL-XL [Concomitant]
     Dosage: 37.5 MG
     Route: 048
  5. ADVAIR DISKUS 100/50 [Concomitant]
     Indication: EMPHYSEMA
  6. ASPIRIN [Concomitant]
     Indication: ATRIAL FIBRILLATION
     Dosage: 81 MG
     Route: 048
  7. PRADAXA [Suspect]
     Indication: ATRIAL FIBRILLATION
     Dosage: 300 MG
     Route: 048
     Dates: start: 20110308
  8. CO ENZYME 10 [Concomitant]
     Route: 048

REACTIONS (5)
  - BURNING SENSATION [None]
  - CONTUSION [None]
  - IRRITABLE BOWEL SYNDROME [None]
  - HEADACHE [None]
  - ABDOMINAL DISCOMFORT [None]
